FAERS Safety Report 13345098 (Version 2)
Quarter: 2017Q3

REPORT INFORMATION
  Report Type: Spontaneous
  Country: US (occurrence: US)
  Receive Date: 20170317
  Receipt Date: 20170828
  Transmission Date: 20171127
  Serious: No
  Sender: FDA-Public Use
  Company Number: US-PFIZER INC-2017109354

PATIENT
  Age: 65 Year
  Sex: Female

DRUGS (1)
  1. XELJANZ [Suspect]
     Active Substance: TOFACITINIB CITRATE
     Dosage: 5 MG, UNK
     Dates: start: 201610

REACTIONS (4)
  - Nasal congestion [Unknown]
  - Oral disorder [Unknown]
  - Oral mucosal blistering [Unknown]
  - Blister [Unknown]

NARRATIVE: CASE EVENT DATE: 20170310
